FAERS Safety Report 11539250 (Version 1)
Quarter: 2015Q3

REPORT INFORMATION
  Report Type: Spontaneous
  Country: US (occurrence: None)
  Receive Date: 20150922
  Receipt Date: 20150922
  Transmission Date: 20151125
  Serious: Yes (Other)
  Sender: FDA-Public Use
  Company Number: None

PATIENT
  Age: 33 Year
  Sex: Male
  Weight: 88.45 kg

DRUGS (3)
  1. VENLAFAXINE ER [Suspect]
     Active Substance: VENLAFAXINE HYDROCHLORIDE
     Indication: POST-TRAUMATIC STRESS DISORDER
     Route: 048
     Dates: start: 20150316, end: 20150917
  2. OMEPREZOL [Concomitant]
  3. MULTI-VITAMIN (SAM^S CLUB BRAND) [Concomitant]

REACTIONS (5)
  - Palpitations [None]
  - Paraesthesia [None]
  - Disorientation [None]
  - Drug withdrawal syndrome [None]
  - Dizziness [None]

NARRATIVE: CASE EVENT DATE: 20150918
